FAERS Safety Report 25712071 (Version 1)
Quarter: 2025Q3

REPORT INFORMATION
  Report Type: Spontaneous
  Country: US (occurrence: US)
  Receive Date: 20250821
  Receipt Date: 20250821
  Transmission Date: 20251020
  Serious: Yes (Other)
  Sender: ELI LILLY AND COMPANY
  Company Number: US-ELI_LILLY_AND_COMPANY-US202508011547

PATIENT
  Age: 67 Year
  Sex: Female

DRUGS (1)
  1. CYMBALTA [Suspect]
     Active Substance: DULOXETINE HYDROCHLORIDE
     Indication: Fibromyalgia
     Dosage: 90 MG, DAILY
     Route: 048
     Dates: start: 2005

REACTIONS (7)
  - Delirium tremens [Unknown]
  - Migraine [Unknown]
  - Pain [Unknown]
  - Nightmare [Unknown]
  - Headache [Unknown]
  - Feeling abnormal [Unknown]
  - Withdrawal syndrome [Unknown]
